FAERS Safety Report 10200106 (Version 2)
Quarter: 2014Q2

REPORT INFORMATION
  Report Type: Spontaneous
  Country: US (occurrence: US)
  Receive Date: 20140527
  Receipt Date: 20140527
  Transmission Date: 20141212
  Serious: Yes (Other)
  Sender: FDA-Public Use
  Company Number: US-UCBSA-120983

PATIENT
  Age: 41 Year
  Sex: Female
  Weight: 65.7 kg

DRUGS (3)
  1. KEPPRA [Suspect]
     Indication: CONVULSION
     Dosage: DOSE AND FREQUENCY : 500MG 2 DAILY
     Dates: end: 2014
  2. KEPPRA XR [Suspect]
     Indication: EPILEPSY
     Dosage: 3 IN AM AND 3 IN PM, BEEN TAKING FOR SEVERAL YEARS
     Route: 048
     Dates: start: 2014
  3. DILANTIN [Concomitant]
     Indication: EPILEPSY
     Dosage: 100 MG , 2 PILLS EACH NIGHT
     Route: 048

REACTIONS (5)
  - Convulsion [Not Recovered/Not Resolved]
  - Loss of consciousness [Unknown]
  - Amnesia [Unknown]
  - Head injury [Unknown]
  - Inappropriate schedule of drug administration [Not Recovered/Not Resolved]
